FAERS Safety Report 24851451 (Version 2)
Quarter: 2025Q3

REPORT INFORMATION
  Report Type: Spontaneous
  Country: US (occurrence: US)
  Receive Date: 20250116
  Receipt Date: 20250814
  Transmission Date: 20251021
  Serious: Yes (Death)
  Sender: SK LIFE SCIENCE
  Company Number: US-SK LIFE SCIENCE, INC-SKPVG-2024-001137

PATIENT

DRUGS (9)
  1. XCOPRI [Suspect]
     Active Substance: CENOBAMATE
     Indication: Seizure
     Route: 048
     Dates: start: 20240229
  2. XCOPRI [Suspect]
     Active Substance: CENOBAMATE
     Indication: Epilepsy
     Dosage: 200 MILLIGRAM, QD
     Route: 048
     Dates: end: 20240528
  3. XCOPRI [Suspect]
     Active Substance: CENOBAMATE
     Dosage: 250 MILLIGRAM, QD
     Route: 048
     Dates: start: 20240603
  4. XCOPRI [Suspect]
     Active Substance: CENOBAMATE
     Dosage: 250 MILLIGRAM, QD
     Route: 048
  5. XCOPRI [Suspect]
     Active Substance: CENOBAMATE
     Dosage: 350 MILLIGRAMS (TWO 150 MILLIGRAM)
     Route: 048
  6. XCOPRI [Suspect]
     Active Substance: CENOBAMATE
     Dosage: 350 MILLIGRAMS (50 MILLIGRAM)
     Route: 048
  7. XCOPRI [Suspect]
     Active Substance: CENOBAMATE
     Dosage: 400 MILLIGRAM, QD (200MG TWO TABLETS PER DAY)
     Route: 048
     Dates: end: 20250810
  8. MULTIVITAMINS                      /07504101/ [Concomitant]
     Indication: Product used for unknown indication
     Route: 065
     Dates: start: 1974
  9. FLAXSEED OIL                       /01649403/ [Concomitant]
     Indication: Product used for unknown indication
     Route: 065
     Dates: start: 20240204

REACTIONS (7)
  - Myocardial infarction [Fatal]
  - Seizure cluster [Not Recovered/Not Resolved]
  - Seizure [Unknown]
  - Product dose omission issue [Recovered/Resolved]
  - Product dose omission issue [Recovered/Resolved]
  - Head injury [Recovered/Resolved]
  - Somnolence [Not Recovered/Not Resolved]

NARRATIVE: CASE EVENT DATE: 20240529
